FAERS Safety Report 8730289 (Version 2)
Quarter: 2012Q4

REPORT INFORMATION
  Report Type: 
  Country: PH (occurrence: PH)
  Receive Date: 20120817
  Receipt Date: 20120926
  Transmission Date: 20130627
  Serious: Yes (Life-Threatening)
  Sender: FDA-Public Use
  Company Number: PH-ABBOTT-12P-128-0967969-00

PATIENT
  Age: 24 Year
  Sex: Female

DRUGS (1)
  1. UTROGESTAN [Suspect]
     Indication: PROPHYLAXIS OF ABORTION
     Dosage: From 26 weeks to 36 weeks AOG.
     Route: 065

REACTIONS (3)
  - Procedural haemorrhage [Recovering/Resolving]
  - Caesarean section [Recovered/Resolved]
  - Uterine atony [Unknown]
